FAERS Safety Report 7957352-5 (Version None)
Quarter: 2011Q4

REPORT INFORMATION
  Report Type: 
  Country: None (occurrence: None)
  Receive Date: 20111205
  Receipt Date: 20111129
  Transmission Date: 20120403
  Serious: Yes (Life-Threatening, Hospitalization, Other)
  Sender: FDA-Public Use
  Company Number: GXKR2011DE003478

PATIENT
  Age: 68 Year
  Sex: Male

DRUGS (1)
  1. CEFUROXIME [Suspect]
     Dosage: 500 MG, TID
     Route: 048
     Dates: start: 20100330, end: 20100406

REACTIONS (1)
  - RENAL FAILURE ACUTE [None]
